FAERS Safety Report 7253885-8 (Version None)
Quarter: 2011Q1

REPORT INFORMATION
  Report Type: 
  Country: None (occurrence: None)
  Receive Date: 20110129
  Receipt Date: 20100409
  Transmission Date: 20110831
  Serious: No
  Sender: FDA-Public Use
  Company Number: US-ABBOTT-10P-163-0638812-00

PATIENT
  Sex: Male
  Weight: 70.37 kg

DRUGS (3)
  1. HUMIRA [Suspect]
     Dates: start: 20100408
  2. UNKNOWN TOPICAL  STEROID [Concomitant]
     Indication: PRODUCT USED FOR UNKNOWN INDICATION
     Dates: start: 20100301, end: 20100401
  3. HUMIRA [Suspect]
     Indication: PSORIASIS
     Dates: start: 20090430, end: 20100301

REACTIONS (1)
  - ERYTHRODERMIC PSORIASIS [None]
